FAERS Safety Report 20711008 (Version 1)
Quarter: 2022Q2

REPORT INFORMATION
  Report Type: Spontaneous
  Country: US (occurrence: None)
  Receive Date: 20220414
  Receipt Date: 20220414
  Transmission Date: 20220721
  Serious: Yes (Hospitalization)
  Sender: FDA-Public Use
  Company Number: None

PATIENT
  Age: 35 Year
  Sex: Male
  Weight: 87.75 kg

DRUGS (2)
  1. VIVITROL [Suspect]
     Active Substance: NALTREXONE
     Indication: Alcohol use disorder
     Route: 030
     Dates: start: 20220413, end: 20220413
  2. VIVITROL [Concomitant]
     Active Substance: NALTREXONE
     Dates: end: 20220413

REACTIONS (3)
  - Dizziness [None]
  - Vomiting [None]
  - Impaired work ability [None]

NARRATIVE: CASE EVENT DATE: 20220413
